FAERS Safety Report 19416111 (Version 6)
Quarter: 2022Q1

REPORT INFORMATION
  Report Type: Spontaneous
  Country: IN (occurrence: IN)
  Receive Date: 20210614
  Receipt Date: 20220325
  Transmission Date: 20220424
  Serious: Yes (Other)
  Sender: FDA-Public Use
  Company Number: IN-PFIZER INC-2021651682

PATIENT
  Age: 72 Year
  Sex: Male
  Weight: 63.7 kg

DRUGS (6)
  1. DACOMITINIB [Suspect]
     Active Substance: DACOMITINIB
     Dosage: 45 MG
     Route: 048
     Dates: start: 20210128
  2. DACOMITINIB [Suspect]
     Active Substance: DACOMITINIB
     Dosage: 45 MG
     Route: 048
     Dates: start: 20210602
  3. DACOMITINIB [Suspect]
     Active Substance: DACOMITINIB
     Dosage: 30 MG, 1X/DAY
     Dates: start: 20210616
  4. DACOMITINIB [Suspect]
     Active Substance: DACOMITINIB
     Dosage: 15 MG, 1X/DAY
     Route: 048
     Dates: start: 20211126
  5. REGLAN [Concomitant]
     Active Substance: METOCLOPRAMIDE HYDROCHLORIDE
     Indication: Prophylaxis of nausea and vomiting
     Dosage: UNK, AS NEEDED
     Dates: start: 20210602
  6. IMODIUM [Concomitant]
     Active Substance: LOPERAMIDE HYDROCHLORIDE
     Dosage: UNK, AS NEEDED
     Dates: start: 20210602

REACTIONS (7)
  - Pleural effusion [Unknown]
  - Creatinine renal clearance decreased [Unknown]
  - Mouth ulceration [Unknown]
  - Diarrhoea [Unknown]
  - Toothache [Unknown]
  - Mucosal inflammation [Unknown]
  - Rash [Unknown]
